FAERS Safety Report 14524962 (Version 1)
Quarter: 2018Q1

REPORT INFORMATION
  Report Type: Spontaneous
  Country: US (occurrence: US)
  Receive Date: 20180213
  Receipt Date: 20180213
  Transmission Date: 20180509
  Serious: Yes (Hospitalization, Other)
  Sender: FDA-Public Use
  Company Number: US-AUROBINDO-AUR-APL-2018-005451

PATIENT
  Age: 46 Year
  Sex: Female

DRUGS (1)
  1. TRAMADOL. [Suspect]
     Active Substance: TRAMADOL
     Indication: PROCEDURAL PAIN
     Route: 065

REACTIONS (4)
  - Dyspnoea [Unknown]
  - Dysphonia [Unknown]
  - Stridor [Unknown]
  - Vocal cord dysfunction [Recovered/Resolved]
